FAERS Safety Report 7010443-8 (Version None)
Quarter: 2010Q3

REPORT INFORMATION
  Report Type: 
  Country: None (occurrence: None)
  Receive Date: 20100923
  Receipt Date: 20100917
  Transmission Date: 20110219
  Serious: Yes (Other)
  Sender: FDA-Public Use
  Company Number: US-TEVA-248953USA

PATIENT
  Sex: Male

DRUGS (2)
  1. AZILECT [Suspect]
     Indication: PARKINSON'S DISEASE
     Route: 048
     Dates: start: 20100907
  2. ALPRAZOLAM [Concomitant]
     Route: 048

REACTIONS (1)
  - THROMBOSIS [None]
